FAERS Safety Report 6098297-8 (Version None)
Quarter: 2009Q1

REPORT INFORMATION
  Report Type: 
  Country: None (occurrence: None)
  Receive Date: 20090302
  Receipt Date: 20090220
  Transmission Date: 20090719
  Serious: Yes (Other)
  Sender: FDA-Public Use
  Company Number: IL-RANBAXY-2009US-22073

PATIENT

DRUGS (2)
  1. NITROFURANTOIN MONOHYDRATE/MACROCRYSTALS [Suspect]
     Indication: URINARY TRACT INFECTION
     Dosage: UNK, UNK
     Route: 065
  2. OFLOXACIN [Suspect]
     Indication: URINARY TRACT INFECTION
     Route: 065

REACTIONS (6)
  - DYSURIA [None]
  - HEPATITIS [None]
  - MICTURITION URGENCY [None]
  - POLLAKIURIA [None]
  - PYREXIA [None]
  - TUBULOINTERSTITIAL NEPHRITIS [None]
